FAERS Safety Report 26046523 (Version 2)
Quarter: 2025Q4

REPORT INFORMATION
  Report Type: Spontaneous
  Country: EU (occurrence: EU)
  Receive Date: 20251114
  Receipt Date: 20251124
  Transmission Date: 20260119
  Serious: Yes (Death, Other)
  Sender: INCYTE
  Company Number: EU-INCYTE CORPORATION-2025IN012483

PATIENT
  Age: 51 Year

DRUGS (1)
  1. PEMAZYRE [Suspect]
     Active Substance: PEMIGATINIB
     Indication: Cholangiocarcinoma
     Dosage: 13.5MG, QD FOR 2 WEEKS THEN ONE WEEK WITHOUT TREATMENT

REACTIONS (6)
  - Death [Fatal]
  - Cholangiocarcinoma [Unknown]
  - Disease progression [Unknown]
  - Dry eye [Recovered/Resolved]
  - Alopecia [Unknown]
  - Nail dystrophy [Unknown]
